FAERS Safety Report 17837833 (Version 1)
Quarter: 2020Q2

REPORT INFORMATION
  Report Type: Spontaneous
  Country: US (occurrence: US)
  Receive Date: 20200528
  Receipt Date: 20200528
  Transmission Date: 20200714
  Serious: No
  Sender: FDA-Public Use
  Company Number: US-INSUD PHARMA-2005US00081

PATIENT

DRUGS (5)
  1. QUITE A FEW MEDS [Concomitant]
  2. BLOOD PRESSURE MEDS [Concomitant]
  3. LANSOPRAZOLE. [Suspect]
     Active Substance: LANSOPRAZOLE
     Dosage: 30 MG ONCE A DAY
     Route: 048
     Dates: start: 20200324, end: 2020
  4. LANSOPRAZOLE. [Suspect]
     Active Substance: LANSOPRAZOLE
     Indication: GASTROOESOPHAGEAL REFLUX DISEASE
     Dosage: 30 MG ONCE A DAY
     Route: 048
     Dates: start: 20200503
  5. CHOLESTEROL MEDS [Concomitant]

REACTIONS (3)
  - Abdominal discomfort [Not Recovered/Not Resolved]
  - Therapeutic product effect decreased [Not Recovered/Not Resolved]
  - Product physical issue [Unknown]

NARRATIVE: CASE EVENT DATE: 202003
